FAERS Safety Report 7670445-5 (Version None)
Quarter: 2011Q3

REPORT INFORMATION
  Report Type: 
  Country: None (occurrence: None)
  Receive Date: 20110809
  Receipt Date: 20110728
  Transmission Date: 20111222
  Serious: No
  Sender: FDA-Public Use
  Company Number: US-BIOGENIDEC-2011BI028512

PATIENT
  Sex: Female

DRUGS (1)
  1. TYSABRI [Suspect]
     Indication: MULTIPLE SCLEROSIS
     Route: 042
     Dates: start: 20090428, end: 20110419

REACTIONS (5)
  - DRUG DELIVERY DEVICE IMPLANTATION [None]
  - MUSCLE ATROPHY [None]
  - PROGRESSIVE MULTIPLE SCLEROSIS [None]
  - GENERAL SYMPTOM [None]
  - GAIT DISTURBANCE [None]
